FAERS Safety Report 17666344 (Version 1)
Quarter: 2020Q2

REPORT INFORMATION
  Report Type: Spontaneous
  Country: US (occurrence: US)
  Receive Date: 20200414
  Receipt Date: 20200414
  Transmission Date: 20200713
  Serious: Yes (Other)
  Sender: FDA-Public Use
  Company Number: US-SA-2020SA089045

PATIENT
  Age: 59 Year
  Sex: Female

DRUGS (17)
  1. CHANTIX [Concomitant]
     Active Substance: VARENICLINE TARTRATE
  2. METHYLPRED [Concomitant]
     Active Substance: METHYLPREDNISOLONE
  3. NORCO [Concomitant]
     Active Substance: ACETAMINOPHEN\HYDROCODONE BITARTRATE
  4. LIDOCAINE. [Concomitant]
     Active Substance: LIDOCAINE
  5. METHOTREXATE. [Concomitant]
     Active Substance: METHOTREXATE
  6. KEVZARA [Suspect]
     Active Substance: SARILUMAB
     Dosage: 200 MG, QOW
     Route: 058
  7. CITALOPRAM [Concomitant]
     Active Substance: CITALOPRAM HYDROBROMIDE
  8. DOXYCYCLINE HYDROCHLORIDE [Concomitant]
     Active Substance: DOXYCYCLINE HYDROCHLORIDE
  9. FLUTICASONE. [Concomitant]
     Active Substance: FLUTICASONE
  10. HYDROCHLOROTHIAZIDE. [Concomitant]
     Active Substance: HYDROCHLOROTHIAZIDE
  11. LISINOPRIL. [Concomitant]
     Active Substance: LISINOPRIL
  12. BIOTIN [Concomitant]
     Active Substance: BIOTIN
  13. ASPIRIN [ACETYLSALICYLIC ACID] [Concomitant]
     Active Substance: ASPIRIN
  14. PREDNISONE. [Concomitant]
     Active Substance: PREDNISONE
  15. BUSPIRONE [Concomitant]
     Active Substance: BUSPIRONE HYDROCHLORIDE
  16. GABAPENTIN. [Concomitant]
     Active Substance: GABAPENTIN
  17. OMEPRAZOLE. [Concomitant]
     Active Substance: OMEPRAZOLE
     Dosage: UNK

REACTIONS (5)
  - Furuncle [Unknown]
  - Purulent discharge [Unknown]
  - Condition aggravated [Unknown]
  - Pain [Unknown]
  - Genital abscess [Unknown]

NARRATIVE: CASE EVENT DATE: 2019
